FAERS Safety Report 15283422 (Version 1)
Quarter: 2018Q3

REPORT INFORMATION
  Report Type: Report from Study
  Country: DZ (occurrence: DZ)
  Receive Date: 20180816
  Receipt Date: 20180816
  Transmission Date: 20181010
  Serious: Yes (Other)
  Sender: FDA-Public Use
  Company Number: DZ-EMD SERONO-9032667

PATIENT
  Age: 22 Year
  Sex: Male

DRUGS (1)
  1. REBIF [Suspect]
     Active Substance: INTERFERON BETA-1A
     Indication: MULTIPLE SCLEROSIS
     Route: 058
     Dates: start: 20170226

REACTIONS (6)
  - Pain in extremity [Recovered/Resolved]
  - Injection site plaque [Not Recovered/Not Resolved]
  - Injection site reaction [Not Recovered/Not Resolved]
  - Necrosis [Not Recovered/Not Resolved]
  - Wrong technique in product usage process [Recovered/Resolved]
  - Injection site erythema [Not Recovered/Not Resolved]

NARRATIVE: CASE EVENT DATE: 20180612
